FAERS Safety Report 7178981-5 (Version None)
Quarter: 2010Q4

REPORT INFORMATION
  Report Type: 
  Country: None (occurrence: None)
  Receive Date: 20101221
  Receipt Date: 20101208
  Transmission Date: 20110411
  Serious: Yes (Other)
  Sender: FDA-Public Use
  Company Number: PHFR2010GB05331

PATIENT
  Sex: Male

DRUGS (10)
  1. CLOZARIL [Suspect]
     Indication: SCHIZOPHRENIA
     Dosage: UNK
     Route: 048
     Dates: start: 20100816
  2. BUMETANIDE [Concomitant]
  3. SPIRONOLACTONE [Concomitant]
  4. MOVICOL [Concomitant]
  5. ALLOPURINOL [Concomitant]
  6. ASPIRIN [Concomitant]
  7. FOLIC ACID [Concomitant]
  8. SIMVASTATIN [Concomitant]
  9. RAMIPRIL [Concomitant]
  10. SANDO K [Concomitant]

REACTIONS (6)
  - C-REACTIVE PROTEIN INCREASED [None]
  - CARDIAC DISORDER [None]
  - CARDIAC PACEMAKER INSERTION [None]
  - COUGH [None]
  - LOWER RESPIRATORY TRACT INFECTION [None]
  - OROPHARYNGEAL PAIN [None]
